FAERS Safety Report 16914752 (Version 2)
Quarter: 2019Q4

REPORT INFORMATION
  Report Type: Spontaneous
  Country: GB (occurrence: GB)
  Receive Date: 20191014
  Receipt Date: 20191022
  Transmission Date: 20200122
  Serious: Yes (Other)
  Sender: FDA-Public Use
  Company Number: GB-SA-2019SA278414

PATIENT
  Age: 43 Year
  Sex: Female

DRUGS (9)
  1. NIFEDIPINE. [Concomitant]
     Active Substance: NIFEDIPINE
  2. FUCIBET [Concomitant]
     Indication: ECZEMA INFECTED
     Dosage: 2 DF, QD
  3. EUMOVATE [Concomitant]
     Active Substance: CLOBETASONE BUTYRATE
     Indication: ECZEMA
  4. PROTOPIC [Concomitant]
     Active Substance: TACROLIMUS
  5. DUPILUMAB [Suspect]
     Active Substance: DUPILUMAB
     Indication: DERMATITIS ATOPIC
     Dosage: 300 MG
     Route: 051
     Dates: start: 20180430, end: 201903
  6. BALNEUM PLUS [POLIDOCANOL;UREA] [Concomitant]
  7. DIPROBASE [PARAFFIN, LIQUID;WHITE SOFT PARAFFIN] [Concomitant]
  8. NIZORAL [Concomitant]
     Active Substance: KETOCONAZOLE
     Indication: ECZEMA
  9. DERMOVATE [Concomitant]
     Active Substance: CLOBETASOL
     Indication: ECZEMA

REACTIONS (2)
  - Cutaneous T-cell lymphoma [Not Recovered/Not Resolved]
  - Lymphadenopathy [Unknown]

NARRATIVE: CASE EVENT DATE: 201812
